FAERS Safety Report 21266199 (Version 1)
Quarter: 2022Q3

REPORT INFORMATION
  Report Type: Spontaneous
  Country: FR (occurrence: FR)
  Receive Date: 20220829
  Receipt Date: 20220829
  Transmission Date: 20221027
  Serious: Yes (Other)
  Sender: FDA-Public Use
  Company Number: None

PATIENT
  Age: 34 Year
  Sex: Male
  Weight: 107 kg

DRUGS (2)
  1. LIDOCAINE [Suspect]
     Active Substance: LIDOCAINE
     Indication: Nerve block
     Route: 053
     Dates: start: 20220413, end: 20220413
  2. EPINEPHRINE [Suspect]
     Active Substance: EPINEPHRINE
     Indication: Nerve block
     Route: 053
     Dates: start: 20220413, end: 20220413

REACTIONS (1)
  - Sensorimotor disorder [Recovering/Resolving]

NARRATIVE: CASE EVENT DATE: 20220413
